FAERS Safety Report 4921482-2 (Version None)
Quarter: 2006Q1

REPORT INFORMATION
  Report Type: 
  Country: None (occurrence: None)
  Receive Date: 20060224
  Receipt Date: 20060214
  Transmission Date: 20060701
  Serious: Yes (Other)
  Sender: FDA-Public Use
  Company Number: PHBS2006BR02418

PATIENT
  Age: 62 Year
  Sex: Female

DRUGS (5)
  1. ZOMETA [Suspect]
     Indication: METASTASES TO BONE
     Dosage: 4 MG, UNK
     Route: 042
     Dates: start: 20021219
  2. LENTARON [Concomitant]
     Dates: start: 20020101
  3. FASLODEX [Concomitant]
     Dates: start: 20020101
  4. NAVELBINE [Concomitant]
     Dates: start: 20020101
  5. CYCLOPHOSPHAMIDE + DOXORUBICIN + 5-FU [Concomitant]
     Dosage: 6 CYCLES
     Dates: start: 20020101

REACTIONS (3)
  - DENTAL PROSTHESIS PLACEMENT [None]
  - OSTEONECROSIS [None]
  - TOOTH EXTRACTION [None]
